FAERS Safety Report 7691141-4 (Version None)
Quarter: 2011Q3

REPORT INFORMATION
  Report Type: 
  Country: None (occurrence: None)
  Receive Date: 20110815
  Receipt Date: 20110805
  Transmission Date: 20111222
  Serious: Yes (Hospitalization, Other)
  Sender: FDA-Public Use
  Company Number: 2011SP037074

PATIENT
  Age: 46 Year
  Sex: Female

DRUGS (5)
  1. BACTRIM [Concomitant]
  2. PHENYTOIN [Concomitant]
  3. KEPRA [Concomitant]
  4. TEMODAR [Suspect]
     Indication: GLIOBLASTOMA
     Dosage: 160 MG
  5. DECADRON [Concomitant]

REACTIONS (1)
  - ENDOTRACHEAL INTUBATION [None]
